FAERS Safety Report 8880768 (Version 1)
Quarter: 2012Q4

REPORT INFORMATION
  Report Type: 
  Country: US (occurrence: US)
  Receive Date: 20121101
  Receipt Date: 20121101
  Transmission Date: 20130627
  Serious: Yes (Hospitalization)
  Sender: FDA-Public Use
  Company Number: US-BAYER-2012-113706

PATIENT
  Age: 43 Year
  Sex: Female
  Weight: 68.03 kg

DRUGS (24)
  1. YASMIN [Suspect]
     Indication: CONTRACEPTION
     Dosage: UNK
     Dates: start: 200304, end: 201003
  2. OCELLA [Suspect]
     Indication: CONTRACEPTION
     Dosage: UNK
     Dates: start: 201003, end: 201010
  3. TOPAMAX [Concomitant]
     Indication: MIGRAINE
     Dosage: 200 mg, daily
  4. ABILIFY [Concomitant]
     Indication: DEPRESSION
  5. SERTRALINE [Concomitant]
     Indication: DEPRESSION
     Dosage: 200 mg, daily
  6. ADDERALL [Concomitant]
     Indication: ATTENTION DEFICIT/HYPERACTIVITY DISORDER
     Dosage: 60 mg, UNK
  7. HYDROXYZINE PAMOATE [Concomitant]
     Dosage: 25 mg, UNK
  8. CLEOCIN [Concomitant]
     Indication: PROPHYLACTIC ANTIBIOTIC THERAPY
     Dosage: 100 mg, UNK
  9. TRAMADOL HYDROCHLORIDE [Concomitant]
     Dosage: 50 mg, UNK
  10. FLUCONAZOLE [Concomitant]
     Dosage: 150 mg, UNK
  11. PHENADOZ [Concomitant]
     Dosage: 25 mg, UNK
  12. LUNESTA [Concomitant]
     Dosage: 3 mg, HS
  13. TRILEPTAL [Concomitant]
     Dosage: 75 mg, UNK
  14. PERCOCET [Concomitant]
     Dosage: UNK UNK, PRN
  15. VISTARIL [Concomitant]
     Dosage: 25 mg, UNK
  16. NORCO [Concomitant]
  17. CYMBALTA [Concomitant]
  18. NEURONTIN [Concomitant]
  19. LAMICTAL [Concomitant]
  20. GEODON [Concomitant]
  21. PROPRANOLOL [Concomitant]
  22. ATIVAN [Concomitant]
  23. TRAZODONE [Concomitant]
  24. ALBUTEROL [Concomitant]

REACTIONS (6)
  - Deep vein thrombosis [Not Recovered/Not Resolved]
  - Deep vein thrombosis [None]
  - Pain in extremity [Not Recovered/Not Resolved]
  - Pain in extremity [None]
  - Oedema peripheral [Not Recovered/Not Resolved]
  - Oedema peripheral [None]
